FAERS Safety Report 10145632 (Version 3)
Quarter: 2014Q2

REPORT INFORMATION
  Report Type: Spontaneous
  Country: DE (occurrence: DE)
  Receive Date: 20140501
  Receipt Date: 20140520
  Transmission Date: 20141212
  Serious: Yes (Hospitalization, Other)
  Sender: FDA-Public Use
  Company Number: DE-JNJFOC-20140315068

PATIENT
  Age: 5 Year
  Sex: Male
  Weight: 18 kg

DRUGS (2)
  1. DOLORMIN FUR KINDER IBUPROFENSAFT 2% [Suspect]
     Indication: EAR PAIN
     Route: 048
     Dates: start: 20140101, end: 20140126
  2. DOLORMIN FUR KINDER IBUPROFENSAFT 2% [Suspect]
     Indication: PYREXIA
     Route: 048
     Dates: start: 20140101, end: 20140126

REACTIONS (4)
  - Eye swelling [Recovered/Resolved]
  - Swelling face [Recovered/Resolved]
  - Lip swelling [Recovered/Resolved]
  - Product quality issue [Unknown]
